FAERS Safety Report 4748452-1 (Version None)
Quarter: 2005Q3

REPORT INFORMATION
  Report Type: 
  Country: None (occurrence: None)
  Receive Date: 20050817
  Receipt Date: 20050606
  Transmission Date: 20060218
  Serious: Yes (Other)
  Sender: FDA-Public Use
  Company Number: PHEH2005US05681

PATIENT
  Age: 78 Year
  Sex: Male

DRUGS (1)
  1. GLEEVEC [Suspect]
     Indication: LEUKAEMIA
     Dosage: 400 MG,QD,ORAL
     Route: 048
     Dates: start: 20020101

REACTIONS (2)
  - CONFUSIONAL STATE [None]
  - PARANOIA [None]
